FAERS Safety Report 9220364 (Version 2)
Quarter: 2014Q1

REPORT INFORMATION
  Report Type: Report from Study
  Country: US (occurrence: US)
  Receive Date: 20130409
  Receipt Date: 20140123
  Transmission Date: 20141002
  Serious: Yes (Hospitalization, Other)
  Sender: FDA-Public Use
  Company Number: US-ALEXION-A201300676

PATIENT
  Age: 74 Year
  Sex: Male

DRUGS (2)
  1. SOLIRIS [Suspect]
     Indication: HAEMOLYTIC URAEMIC SYNDROME
     Dosage: UNK
  2. TACROLIMUS [Suspect]
     Indication: PRODUCT USED FOR UNKNOWN INDICATION

REACTIONS (10)
  - Colectomy [Unknown]
  - Renal failure acute [Unknown]
  - Pneumonia [Unknown]
  - Chest tube insertion [Unknown]
  - Anastomotic leak [Unknown]
  - Ileus [Unknown]
  - White blood cell count increased [Unknown]
  - Parenteral nutrition [Unknown]
  - Immunosuppression [Unknown]
  - Off label use [Unknown]
